FAERS Safety Report 8771930 (Version 1)
Quarter: 2012Q4

REPORT INFORMATION
  Report Type: 
  Country: US (occurrence: US)
  Receive Date: 20120905
  Receipt Date: 20120905
  Transmission Date: 20130627
  Serious: Yes (Other)
  Sender: FDA-Public Use
  Company Number: PHEH2012US017162

PATIENT
  Sex: Female

DRUGS (14)
  1. DIOVAN [Suspect]
     Dosage: UNK UKN, UNK
     Dates: start: 2009
  2. DIOVAN [Suspect]
     Dosage: UNK UKN, UNK
     Dates: start: 201110
  3. LISINOPRIL [Suspect]
     Dosage: UNK UKN, UNK
  4. HUMALOG MIX   75,25 [Concomitant]
     Dosage: UNK UKN, UNK
  5. HUMALOG [Concomitant]
     Dosage: UNK UKN, UNK
  6. METFORMIN [Concomitant]
     Dosage: UNK UKN, UNK
  7. AMLODIPINE [Concomitant]
     Dosage: UNK UKN, UNK
  8. HYDRALAZINE [Concomitant]
     Dosage: UNK UKN, UNK
  9. VITAMIN D [Concomitant]
     Dosage: UNK UKN, UNK
  10. VITAMIN B [Concomitant]
     Dosage: UNK UKN, UNK
  11. HYDROCHLOROTHIAZIDE [Concomitant]
     Dosage: UNK UKN, UNK
  12. METOPROLOL [Concomitant]
     Dosage: UNK UKN, UNK
  13. OMEPRAZOLE [Concomitant]
     Dosage: UNK UKN, UNK
  14. XANAX [Concomitant]
     Dosage: UNK UKN, UNK

REACTIONS (3)
  - Myocardial infarction [Unknown]
  - Fatigue [Unknown]
  - Asthenia [Unknown]
